FAERS Safety Report 4463626-5 (Version None)
Quarter: 2004Q3

REPORT INFORMATION
  Report Type: 
  Country: None (occurrence: None)
  Receive Date: 20040930
  Receipt Date: 20040927
  Transmission Date: 20050211
  Serious: Yes (Other)
  Sender: FDA-Public Use
  Company Number: 002794

PATIENT
  Age: 56 Year
  Sex: Female

DRUGS (4)
  1. MEDROXYPROGESTERONE ACETATE [Suspect]
     Dates: start: 19890301, end: 19970701
  2. PROVERA [Suspect]
     Dates: start: 19890301, end: 19970701
  3. MEDROXYPROGESTERONE ACETATE [Suspect]
     Dates: start: 19960801, end: 19970901
  4. PREMARIN [Suspect]
     Dates: start: 19890301, end: 20020801

REACTIONS (1)
  - OVARIAN CANCER [None]
